FAERS Safety Report 5869804-2 (Version None)
Quarter: 2008Q3

REPORT INFORMATION
  Report Type: 
  Country: None (occurrence: None)
  Receive Date: 20080904
  Receipt Date: 20080825
  Transmission Date: 20090109
  Serious: Yes (Hospitalization)
  Sender: FDA-Public Use
  Company Number: JP-AMGEN-US143902

PATIENT
  Sex: Female
  Weight: 44.8 kg

DRUGS (6)
  1. ENBREL [Suspect]
     Indication: JUVENILE ARTHRITIS
     Route: 058
     Dates: start: 20040219
  2. METHOTREXATE SODIUM [Concomitant]
     Dosage: UNKNOWN
  3. BRUFEN [Concomitant]
     Indication: JUVENILE ARTHRITIS
     Route: 048
  4. SUCRALFATE [Concomitant]
     Indication: PROPHYLAXIS
     Route: 048
  5. PREDNISOLONE [Concomitant]
     Indication: JUVENILE ARTHRITIS
     Dosage: DECREASED GRADUALLY FROM 7 MG
     Route: 048
  6. MYDRIN P [Concomitant]
     Indication: IRIDOCYCLITIS
     Dosage: AS NEEDED
     Route: 047
     Dates: start: 20011001

REACTIONS (3)
  - CONDITION AGGRAVATED [None]
  - RETINAL NEOVASCULARISATION [None]
  - UVEITIS [None]
